FAERS Safety Report 7278673-8 (Version None)
Quarter: 2011Q1

REPORT INFORMATION
  Report Type: 
  Country: None (occurrence: None)
  Receive Date: 20110207
  Receipt Date: 20110202
  Transmission Date: 20110831
  Serious: Yes (Other)
  Sender: FDA-Public Use
  Company Number: US-PFIZER INC-2011024427

PATIENT
  Sex: Male

DRUGS (8)
  1. NEURONTIN [Suspect]
     Dosage: UNK
  2. AMARYL [Concomitant]
     Dosage: 4 MG, UNK
  3. POTASSIUM [Concomitant]
     Dosage: 20 MEQ, UNK
  4. MAXZIDE [Concomitant]
     Dosage: UNK
  5. ATENOLOL [Concomitant]
     Dosage: UNK
  6. OMEPRAZOLE [Concomitant]
     Dosage: UNK
  7. BENAZEPRIL [Concomitant]
     Dosage: 20 MG, UNK
  8. NEURONTIN [Suspect]
     Indication: ANALGESIC THERAPY
     Dosage: 100 MG, 3X/DAY
     Route: 048
     Dates: start: 20091001

REACTIONS (1)
  - DEAFNESS [None]
